FAERS Safety Report 9359140 (Version 2)
Quarter: 2013Q2

REPORT INFORMATION
  Report Type: Spontaneous
  Country: AU (occurrence: AU)
  Receive Date: 20130620
  Receipt Date: 20130626
  Transmission Date: 20140414
  Serious: Yes (Death)
  Sender: FDA-Public Use
  Company Number: AU-B.I. PHARMACEUTICALS,INC./RIDGEFIELD-2013-AU-00739AU

PATIENT
  Sex: Female

DRUGS (11)
  1. PRADAXA [Suspect]
     Indication: CEREBROVASCULAR ACCIDENT PROPHYLAXIS
     Dosage: 220 MG
     Dates: start: 20110816
  2. PRADAXA [Suspect]
     Indication: ATRIAL FIBRILLATION
  3. AVAPRO [Concomitant]
  4. DIGOXIN [Concomitant]
  5. METFORMIN [Concomitant]
  6. FOSAMAX [Concomitant]
  7. LIPITOR [Concomitant]
  8. CALCIUM [Concomitant]
  9. MOVICOL [Concomitant]
  10. OXYCONTIN [Concomitant]
  11. FISH OIL [Concomitant]

REACTIONS (2)
  - Myocardial infarction [Fatal]
  - Pneumonia [Unknown]
